FAERS Safety Report 8242924 (Version 3)
Quarter: 2013Q1

REPORT INFORMATION
  Report Type: Spontaneous
  Country: US (occurrence: US)
  Receive Date: 20111114
  Receipt Date: 20130219
  Transmission Date: 20140127
  Serious: Yes (Death, Hospitalization)
  Sender: FDA-Public Use
  Company Number: US-JNJFOC-20111104945

PATIENT
  Age: 37 Year
  Sex: Male

DRUGS (13)
  1. TYLENOL [Suspect]
     Route: 048
  2. TYLENOL [Suspect]
     Indication: SUICIDE ATTEMPT
     Route: 048
     Dates: start: 20091106
  3. FLEXERIL [Suspect]
     Indication: PRODUCT USED FOR UNKNOWN INDICATION
     Route: 065
  4. ZOLOFT [Suspect]
     Indication: PRODUCT USED FOR UNKNOWN INDICATION
     Route: 065
  5. SEROQUEL [Suspect]
     Indication: PRODUCT USED FOR UNKNOWN INDICATION
     Route: 065
  6. LISINOPRIL [Concomitant]
     Route: 065
  7. OXYCODONE [Concomitant]
     Indication: PAIN
     Route: 065
  8. AMITRIPTYLINE [Concomitant]
     Route: 065
  9. LEVOTHYROXINE [Concomitant]
     Route: 065
  10. CIALIS [Concomitant]
     Route: 065
  11. NEXIUM [Concomitant]
     Route: 065
  12. BUSPAR [Concomitant]
     Route: 065
  13. PHENYTOIN SODIUM EXTENDED [Concomitant]
     Route: 048

REACTIONS (9)
  - Completed suicide [Fatal]
  - Multi-organ failure [Fatal]
  - Acute hepatic failure [Fatal]
  - Toxicity to various agents [Fatal]
  - Intentional overdose [Fatal]
  - Myocardial infarction [Fatal]
  - Hepatitis acute [None]
  - Brain oedema [None]
  - Acidosis [None]
